FAERS Safety Report 9354418 (Version 1)
Quarter: 2013Q2

REPORT INFORMATION
  Report Type: Spontaneous
  Country: HR (occurrence: HR)
  Receive Date: 20130618
  Receipt Date: 20130618
  Transmission Date: 20140414
  Serious: Yes (Hospitalization)
  Sender: FDA-Public Use
  Company Number: HR-TEVA-412910ISR

PATIENT
  Age: 79 Year
  Sex: Male

DRUGS (6)
  1. KLAVOCIN [Suspect]
     Indication: PHARYNGITIS
     Dosage: 2 DOSAGE FORMS DAILY; DOSAGE FORM IS 875 MG AMOXICILLIN AND 125 MG CLAVULANIC ACID
     Route: 048
     Dates: start: 20130422, end: 20130505
  2. AZITRIM [Suspect]
     Indication: PHARYNGITIS
     Dosage: 500 MILLIGRAM DAILY;
     Route: 048
     Dates: start: 20130507, end: 20130507
  3. ALOPURINOL [Suspect]
     Indication: GOUT
     Dosage: 300 MILLIGRAM DAILY;
     Route: 048
     Dates: start: 20130417
  4. IBUPROFEN [Suspect]
     Indication: PAIN
     Dosage: 1200 MILLIGRAM DAILY;
     Route: 048
     Dates: start: 20130507
  5. DIAZEPAM [Concomitant]
  6. HALDOL [Concomitant]

REACTIONS (8)
  - Stevens-Johnson syndrome [Recovering/Resolving]
  - Hypersensitivity [Recovering/Resolving]
  - Rash maculo-papular [Recovering/Resolving]
  - Conjunctival haemorrhage [Recovering/Resolving]
  - Mouth haemorrhage [Recovering/Resolving]
  - Oral mucosal exfoliation [Recovering/Resolving]
  - Pyrexia [Recovering/Resolving]
  - Testicular oedema [Recovering/Resolving]
